FAERS Safety Report 15299322 (Version 2)
Quarter: 2018Q3

REPORT INFORMATION
  Report Type: Report from Study
  Country: IT (occurrence: IT)
  Receive Date: 20180821
  Receipt Date: 20180907
  Transmission Date: 20181010
  Serious: No
  Sender: FDA-Public Use
  Company Number: IT-TAKEDA-2018TUS025000

PATIENT
  Age: 44 Year
  Sex: Female

DRUGS (1)
  1. BRIGATINIB [Suspect]
     Active Substance: BRIGATINIB
     Indication: NON-SMALL CELL LUNG CANCER STAGE IV
     Dosage: 60 MG, QD
     Route: 065

REACTIONS (2)
  - Lung consolidation [Unknown]
  - Lung disorder [Unknown]
